FAERS Safety Report 8606849 (Version 3)
Quarter: 2014Q1

REPORT INFORMATION
  Report Type: Spontaneous
  Country: US (occurrence: US)
  Receive Date: 20120611
  Receipt Date: 20140109
  Transmission Date: 20141002
  Serious: Yes (Hospitalization)
  Sender: FDA-Public Use
  Company Number: US-ASTRAZENECA-2012SE35303

PATIENT
  Age: 43 Year
  Sex: Female
  Weight: 89.8 kg

DRUGS (31)
  1. NEXIUM [Suspect]
     Indication: GASTROOESOPHAGEAL REFLUX DISEASE
     Route: 048
     Dates: start: 2010, end: 20130501
  2. NEXIUM [Suspect]
     Indication: DYSPEPSIA
     Route: 048
     Dates: start: 2010, end: 20130501
  3. NEXIUM [Suspect]
     Indication: ABDOMINAL DISCOMFORT
     Route: 048
     Dates: start: 2010, end: 20130501
  4. OMEPRAZOLE [Suspect]
     Indication: DYSPEPSIA
     Route: 048
     Dates: start: 2011, end: 2013
  5. OMEPRAZOLE [Suspect]
     Indication: ABDOMINAL DISCOMFORT
     Route: 048
     Dates: start: 2011, end: 2013
  6. OMEPRAZOLE [Suspect]
     Indication: DYSPEPSIA
     Route: 048
     Dates: start: 201305
  7. OMEPRAZOLE [Suspect]
     Indication: ABDOMINAL DISCOMFORT
     Route: 048
     Dates: start: 201305
  8. PRILOSEC OTC [Suspect]
     Indication: GASTROOESOPHAGEAL REFLUX DISEASE
     Route: 048
  9. PRILOSEC OTC [Suspect]
     Indication: DYSPEPSIA
     Route: 048
  10. PRILOSEC OTC [Suspect]
     Indication: DYSPEPSIA
     Route: 048
  11. PROTONIX [Concomitant]
     Indication: DYSPEPSIA
     Dates: start: 2004, end: 2006
  12. PROTONIX [Concomitant]
     Indication: DYSPEPSIA
     Dates: start: 2004, end: 2006
  13. PREVACID [Concomitant]
     Indication: GASTROOESOPHAGEAL REFLUX DISEASE
  14. PREVACID [Concomitant]
     Indication: DYSPEPSIA
  15. PREVACID [Concomitant]
     Indication: DYSPEPSIA
  16. RANITIDINE [Concomitant]
     Dates: start: 2007, end: 20130429
  17. PECID [Concomitant]
     Indication: DYSPEPSIA
  18. PECID [Concomitant]
     Indication: DYSPEPSIA
  19. TUMS [Concomitant]
     Indication: GASTROOESOPHAGEAL REFLUX DISEASE
  20. ROLAIDS [Concomitant]
     Indication: GASTROOESOPHAGEAL REFLUX DISEASE
  21. MYLANTA [Concomitant]
     Indication: GASTROOESOPHAGEAL REFLUX DISEASE
  22. PEPTO-BISMOL [Concomitant]
     Indication: GASTROOESOPHAGEAL REFLUX DISEASE
  23. VALPROIC ACID [Concomitant]
     Indication: BIPOLAR DISORDER
  24. POTASSIUM [Concomitant]
     Indication: ASTHENIA
  25. LISINOPRIL [Concomitant]
     Indication: BLOOD PRESSURE ABNORMAL
  26. BENZTROPINE [Concomitant]
     Indication: BIPOLAR DISORDER
  27. SERTRALINE [Concomitant]
     Indication: BIPOLAR DISORDER
  28. PROZAC [Concomitant]
     Indication: DEPRESSION
  29. PREDNISONE [Concomitant]
     Dates: start: 20111112
  30. HALOPERIDOL [Concomitant]
     Dates: start: 20111221
  31. DILTIAZEM [Concomitant]
     Dates: start: 20120517

REACTIONS (10)
  - Dyspepsia [Unknown]
  - Vomiting [Unknown]
  - Abdominal discomfort [Unknown]
  - Abdominal pain upper [Unknown]
  - Osteoporosis [Unknown]
  - Multiple fractures [Unknown]
  - Osteogenesis imperfecta [Unknown]
  - Hypovitaminosis [Unknown]
  - Bone disorder [Unknown]
  - Bone loss [Unknown]
